FAERS Safety Report 7611646-1 (Version None)
Quarter: 2011Q3

REPORT INFORMATION
  Report Type: 
  Country: None (occurrence: None)
  Receive Date: 20110715
  Receipt Date: 20110714
  Transmission Date: 20111222
  Serious: Yes (Death, Other)
  Sender: FDA-Public Use
  Company Number: US-B.I. PHARMACEUTICALS,INC./RIDGEFIELD-2011-BP-15631BP

PATIENT
  Sex: Male

DRUGS (8)
  1. PANTOPRAZOLE SODIUM [Concomitant]
  2. CELEBREX [Concomitant]
  3. PRADAXA [Suspect]
     Indication: ANTICOAGULANT THERAPY
  4. MIRTAZAPINE [Concomitant]
  5. MAGOX [Concomitant]
  6. LEVOTHYROXINE [Concomitant]
  7. PRIMIDONE [Concomitant]
  8. FLUDROCORTISONE ACETATE [Concomitant]

REACTIONS (4)
  - SPEECH DISORDER [None]
  - CEREBROVASCULAR ACCIDENT [None]
  - APHAGIA [None]
  - MOVEMENT DISORDER [None]
